FAERS Safety Report 5979653-2 (Version None)
Quarter: 2008Q4

REPORT INFORMATION
  Report Type: 
  Country: None (occurrence: None)
  Receive Date: 20081204
  Receipt Date: 20081127
  Transmission Date: 20090506
  Serious: Yes (Other)
  Sender: FDA-Public Use
  Company Number: JP-MERCK-0810USA01927

PATIENT
  Age: 20 Year
  Sex: Female

DRUGS (1)
  1. HYDROCORTISONE 10MG TAB [Suspect]
     Indication: SHOCK
     Route: 042
     Dates: start: 20080822, end: 20080822

REACTIONS (1)
  - ANAPHYLACTIC SHOCK [None]
